FAERS Safety Report 21939908 (Version 1)
Quarter: 2023Q1

REPORT INFORMATION
  Report Type: Spontaneous
  Country: KR (occurrence: KR)
  Receive Date: 20230201
  Receipt Date: 20230201
  Transmission Date: 20230417
  Serious: No
  Sender: FDA-Public Use
  Company Number: KR-EXELIXIS-CABO-22049128

PATIENT
  Sex: Male

DRUGS (1)
  1. CABOMETYX [Suspect]
     Active Substance: CABOZANTINIB S-MALATE
     Indication: Renal cell carcinoma
     Dosage: 60 MG

REACTIONS (4)
  - Gastrointestinal disorder [Unknown]
  - Pyrexia [Unknown]
  - Stomatitis [Unknown]
  - Decreased appetite [Unknown]
